FAERS Safety Report 8518500-1 (Version None)
Quarter: 2012Q3

REPORT INFORMATION
  Report Type: 
  Country: None (occurrence: None)
  Receive Date: 20120718
  Receipt Date: 20120424
  Transmission Date: 20120928
  Serious: No
  Sender: FDA-Public Use
  Company Number: US-BRISTOL-MYERS SQUIBB COMPANY-16544959

PATIENT
  Age: 78 Year
  Sex: Female

DRUGS (8)
  1. HYDROCHLOROTHIAZIDE [Concomitant]
  2. NEURONTIN [Concomitant]
  3. TYLENOL [Concomitant]
  4. SYNTHROID [Concomitant]
  5. COUMADIN [Suspect]
     Dates: start: 20090301
  6. BUSPAR [Concomitant]
  7. NORVASC [Concomitant]
  8. VITAMIN B-12 [Concomitant]

REACTIONS (1)
  - INTERNATIONAL NORMALISED RATIO FLUCTUATION [None]
